FAERS Safety Report 8816420 (Version 1)
Quarter: 2012Q4

REPORT INFORMATION
  Report Type: Spontaneous
  Country: US (occurrence: None)
  Receive Date: 20120828
  Receipt Date: 20120828
  Transmission Date: 20130627
  Serious: Yes (Other)
  Sender: FDA-Public Use
  Company Number: None

PATIENT
  Age: 51 Year
  Sex: Male
  Weight: 102 kg

DRUGS (3)
  1. LISINOPRIL [Suspect]
     Indication: HYPERTENSION
     Route: 048
     Dates: start: 20021107, end: 20120501
  2. CIPRO [Suspect]
     Indication: DIVERTICULITIS
  3. FLAGYL [Suspect]
     Indication: DIVERTICULITIS

REACTIONS (2)
  - Diverticulitis [None]
  - Angioedema [None]
